FAERS Safety Report 7278917-2 (Version None)
Quarter: 2011Q1

REPORT INFORMATION
  Report Type: 
  Country: None (occurrence: None)
  Receive Date: 20110207
  Receipt Date: 20110126
  Transmission Date: 20110831
  Serious: Yes (Life-Threatening)
  Sender: FDA-Public Use
  Company Number: GB-CELGENEUS-167-21880-11012727

PATIENT
  Age: 77 Year
  Sex: Male

DRUGS (11)
  1. SIMVASTATIN [Concomitant]
     Route: 065
  2. ASPIRIN [Concomitant]
     Indication: THROMBOSIS PROPHYLAXIS
     Route: 065
     Dates: start: 20101220
  3. SODIUM CLODRONATE [Concomitant]
     Route: 065
  4. DILTIAZEM [Concomitant]
     Route: 065
  5. ISOSORBIDE MONONITRATE [Concomitant]
     Route: 065
  6. ATORVASTATIN CALCIUM [Concomitant]
     Route: 065
  7. CLOPIDOGREL [Concomitant]
     Indication: THROMBOSIS PROPHYLAXIS
     Route: 065
     Dates: start: 20101220
  8. DEXAMETHASONE [Concomitant]
     Indication: MULTIPLE MYELOMA
     Route: 065
     Dates: start: 20101119
  9. REVLIMID [Suspect]
     Indication: MULTIPLE MYELOMA
     Route: 048
     Dates: start: 20101119
  10. WARFARIN [Concomitant]
     Indication: THROMBOSIS PROPHYLAXIS
     Route: 065
     Dates: start: 20101119, end: 20101220
  11. NITROGLYCERIN [Concomitant]
     Route: 065

REACTIONS (3)
  - PULMONARY EMBOLISM [None]
  - ACUTE MYOCARDIAL INFARCTION [None]
  - DYSPNOEA [None]
